FAERS Safety Report 14668459 (Version 1)
Quarter: 2018Q1

REPORT INFORMATION
  Report Type: Spontaneous
  Country: US (occurrence: US)
  Receive Date: 20180321
  Receipt Date: 20180321
  Transmission Date: 20180509
  Serious: Yes (Life-Threatening, Other)
  Sender: FDA-Public Use
  Company Number: None

PATIENT
  Age: 65 Year
  Sex: Male
  Weight: 72 kg

DRUGS (8)
  1. POTASSIUM SUPPLEMENT [Concomitant]
     Active Substance: POTASSIUM
  2. BENADRYL [Concomitant]
     Active Substance: DIPHENHYDRAMINE HYDROCHLORIDE
  3. MULTI-VITAMIN [Concomitant]
     Active Substance: .ALPHA.-TOCOPHEROL ACETATE, DL-\ASCORBIC ACID\CYANOCOBALAMIN\FLUORIDE ION\FOLIC ACID\NIACIN\PYRIDOXINE\RIBOFLAVIN\THIAMINE\VITAMIN A\VITAMIN D
  4. LOW DOSE ASPIRIN [Concomitant]
     Active Substance: ASPIRIN
  5. SUDAFED [Concomitant]
     Active Substance: PSEUDOEPHEDRINE HYDROCHLORIDE
  6. IBUPROFEN. [Concomitant]
     Active Substance: IBUPROFEN
  7. ATORVASTATIN [Suspect]
     Active Substance: ATORVASTATIN
     Indication: BLOOD CHOLESTEROL INCREASED
     Dosage: ?          QUANTITY:1 TABLET(S);?
     Route: 048
     Dates: start: 20180221, end: 20180318
  8. IRON SUPPLEMENT [Concomitant]
     Active Substance: IRON

REACTIONS (9)
  - Flatulence [None]
  - Confusional state [None]
  - Sleep disorder [None]
  - Amnesia [None]
  - Fatigue [None]
  - Abnormal behaviour [None]
  - Abdominal distension [None]
  - Feeling abnormal [None]
  - Asthenia [None]

NARRATIVE: CASE EVENT DATE: 20180224
